FAERS Safety Report 7794908-7 (Version None)
Quarter: 2011Q4

REPORT INFORMATION
  Report Type: 
  Country: None (occurrence: None)
  Receive Date: 20111004
  Receipt Date: 20110923
  Transmission Date: 20120403
  Serious: Yes (Other)
  Sender: FDA-Public Use
  Company Number: GB-MYLANLABS-2011S1019561

PATIENT
  Age: 67 Year
  Sex: Female

DRUGS (3)
  1. ABILIFY [Suspect]
     Indication: PRODUCT USED FOR UNKNOWN INDICATION
  2. LAMOTRIGINE [Suspect]
     Indication: PRODUCT USED FOR UNKNOWN INDICATION
  3. ABILIFY [Suspect]
     Dates: start: 20110908

REACTIONS (4)
  - DEMENTIA [None]
  - DEPRESSION [None]
  - DELUSION [None]
  - PSYCHOTIC DISORDER [None]
